FAERS Safety Report 4393732-5 (Version None)
Quarter: 2004Q3

REPORT INFORMATION
  Report Type: 
  Country: None (occurrence: None)
  Receive Date: 20040709
  Receipt Date: 20040527
  Transmission Date: 20050211
  Serious: Yes (Hospitalization)
  Sender: FDA-Public Use
  Company Number: JP-GLAXOSMITHKLINE-B0335233A

PATIENT
  Age: 49 Year
  Sex: Male
  Weight: 68 kg

DRUGS (6)
  1. CEFTAZIDIME SODIUM [Suspect]
     Indication: BRAIN ABSCESS
     Route: 042
     Dates: start: 20040415, end: 20040508
  2. LEXIN [Suspect]
     Indication: CONVULSION PROPHYLAXIS
     Route: 048
     Dates: start: 20040405, end: 20040503
  3. CARBENIN [Suspect]
     Indication: BRAIN ABSCESS
     Dosage: 4G PER DAY
     Route: 042
     Dates: start: 20040415, end: 20040508
  4. GLYCEOL [Concomitant]
     Indication: OEDEMA
     Dosage: 200MG VARIABLE DOSE
     Route: 042
     Dates: end: 20040525
  5. HYDROCORTISONE SODIUM SUCCINATE [Concomitant]
     Dates: start: 20040503
  6. GLUTATHIONE [Concomitant]
     Dates: start: 20040503

REACTIONS (9)
  - ALANINE AMINOTRANSFERASE INCREASED [None]
  - ASPARTATE AMINOTRANSFERASE INCREASED [None]
  - BLOOD LACTATE DEHYDROGENASE INCREASED [None]
  - DRUG ERUPTION [None]
  - DRUG HYPERSENSITIVITY [None]
  - ERYTHEMA [None]
  - GAMMA-GLUTAMYLTRANSFERASE INCREASED [None]
  - HEPATIC FUNCTION ABNORMAL [None]
  - PYREXIA [None]
